FAERS Safety Report 8995378 (Version 1)
Quarter: 2013Q1

REPORT INFORMATION
  Report Type: Spontaneous
  Country: US (occurrence: US)
  Receive Date: 20130103
  Receipt Date: 20130103
  Transmission Date: 20140127
  Serious: No
  Sender: FDA-Public Use
  Company Number: US-ABBOTT-12P-163-0999872-00

PATIENT
  Sex: Female

DRUGS (1)
  1. SYNTHROID [Suspect]
     Indication: PRODUCT USED FOR UNKNOWN INDICATION
     Dates: start: 1993

REACTIONS (6)
  - Dysstasia [Recovered/Resolved]
  - Nausea [Recovered/Resolved]
  - Diarrhoea [Not Recovered/Not Resolved]
  - Chest pain [Not Recovered/Not Resolved]
  - Dysphagia [Not Recovered/Not Resolved]
  - Pleurisy [Not Recovered/Not Resolved]
